FAERS Safety Report 4474431-8 (Version None)
Quarter: 2004Q4

REPORT INFORMATION
  Report Type: 
  Country: None (occurrence: None)
  Receive Date: 20041012
  Receipt Date: 20040930
  Transmission Date: 20050328
  Serious: Yes (Hospitalization)
  Sender: FDA-Public Use
  Company Number: 2004234027DE

PATIENT
  Age: 76 Year
  Sex: Female
  Weight: 57.9 kg

DRUGS (7)
  1. AROMASIN [Suspect]
     Indication: BREAST CANCER
     Dosage: 25 MG, QD, ORAL
     Route: 048
     Dates: start: 20021004
  2. BISOPROLOL FUMARATE [Concomitant]
  3. ENABETA (ENALAPRIL) [Concomitant]
  4. METFORMIN HCL [Concomitant]
  5. AQUAPHOR (PETROLATUM, WOOL ALCOHOLS, MINERAL OIL LIGHT) [Concomitant]
  6. THIOGAMMA [Concomitant]
  7. FOLIC ACID [Concomitant]

REACTIONS (1)
  - ISCHAEMIC STROKE [None]
